FAERS Safety Report 7989371-7 (Version None)
Quarter: 2011Q4

REPORT INFORMATION
  Report Type: 
  Country: None (occurrence: None)
  Receive Date: 20111219
  Receipt Date: 20111207
  Transmission Date: 20120403
  Serious: Yes (Other)
  Sender: FDA-Public Use
  Company Number: US-JNJFOC-20111203791

PATIENT
  Sex: Female
  Weight: 81.65 kg

DRUGS (2)
  1. REMICADE [Suspect]
     Indication: CROHN'S DISEASE
     Route: 042
     Dates: start: 20111128
  2. PAMELOR [Concomitant]
     Indication: DEPRESSION
     Route: 048

REACTIONS (2)
  - DEPRESSION [None]
  - HEADACHE [None]
